FAERS Safety Report 9381522 (Version 2)
Quarter: 2020Q3

REPORT INFORMATION
  Report Type: Spontaneous
  Country: NL (occurrence: NL)
  Receive Date: 20130703
  Receipt Date: 20200902
  Transmission Date: 20201103
  Serious: Yes (Death)
  Sender: FDA-Public Use
  Company Number: NL-JNJFOC-20130616610

PATIENT
  Age: 66 Year
  Sex: Female

DRUGS (3)
  1. ITRACONAZOLE. [Suspect]
     Active Substance: ITRACONAZOLE
     Indication: ONYCHOMYCOSIS
     Dosage: 1 TIME PER DAY 1 PIECE(S)
     Route: 065
     Dates: start: 20130515, end: 20130609
  2. CALCIUM CARBONATE. [Concomitant]
     Active Substance: CALCIUM CARBONATE
     Indication: PRODUCT USED FOR UNKNOWN INDICATION
     Dosage: 1 TIME PER DAY 1 PIECE(S)
     Route: 065
     Dates: start: 20040318
  3. STRONTIUM RANELATE [Concomitant]
     Active Substance: STRONTIUM RANELATE
     Indication: PRODUCT USED FOR UNKNOWN INDICATION
     Dosage: 1 TIME PER DAY 1 PIECE(S)
     Route: 065
     Dates: start: 20090518

REACTIONS (1)
  - Cerebral haemorrhage [Fatal]

NARRATIVE: CASE EVENT DATE: 20130609
